FAERS Safety Report 9342334 (Version 1)
Quarter: 2013Q2

REPORT INFORMATION
  Report Type: Report from Study
  Country: CA (occurrence: CA)
  Receive Date: 20130611
  Receipt Date: 20130611
  Transmission Date: 20140414
  Serious: Yes (Other)
  Sender: FDA-Public Use
  Company Number: CA-JNJFOC-20130604308

PATIENT
  Age: 66 Year
  Sex: Male
  Weight: 65 kg

DRUGS (5)
  1. REMICADE [Suspect]
     Indication: CROHN^S DISEASE
     Route: 042
     Dates: start: 20080229
  2. VITAMIN B12 [Concomitant]
     Route: 030
  3. EUROCAL [Concomitant]
     Dosage: 1 TAB
     Route: 065
  4. ACLASTA [Concomitant]
     Route: 042
  5. LYRICA [Concomitant]
     Route: 065

REACTIONS (1)
  - Carpal tunnel syndrome [Unknown]
